FAERS Safety Report 7385289-1 (Version None)
Quarter: 2011Q1

REPORT INFORMATION
  Report Type: 
  Country: None (occurrence: None)
  Receive Date: 20110330
  Receipt Date: 20100514
  Transmission Date: 20110831
  Serious: No
  Sender: FDA-Public Use
  Company Number: US-MYLANLABS-2010S1006621

PATIENT
  Age: 59 Year
  Sex: Male
  Weight: 88.45 kg

DRUGS (7)
  1. METFORMIN [Concomitant]
  2. NIASPAN [Concomitant]
  3. EMSAM [Suspect]
     Indication: MAJOR DEPRESSION
     Dosage: Q24H
     Route: 062
     Dates: start: 20070322, end: 20070409
  4. EMSAM [Suspect]
     Indication: BIPOLAR DISORDER
     Dosage: Q24H
     Route: 062
     Dates: start: 20070322, end: 20070409
  5. TAZTIA XT [Concomitant]
  6. WELLBUTRIN SR [Concomitant]
     Dates: start: 20070322, end: 20100201
  7. VYTORIN [Concomitant]

REACTIONS (3)
  - DRUG EFFECT DECREASED [None]
  - MAJOR DEPRESSION [None]
  - BIPOLAR DISORDER [None]
